FAERS Safety Report 10069893 (Version 1)
Quarter: 2014Q2

REPORT INFORMATION
  Report Type: Spontaneous
  Country: US (occurrence: None)
  Receive Date: 20140409
  Receipt Date: 20140409
  Transmission Date: 20141212
  Serious: Yes (Disabling)
  Sender: FDA-Public Use
  Company Number: None

PATIENT
  Age: 69 Year
  Sex: Female
  Weight: 73.48 kg

DRUGS (13)
  1. RECLAST [Suspect]
     Indication: OSTEOPOROSIS
     Dosage: ONCE A YEAR?INJECTION INTO VEINS
     Dates: start: 20130702
  2. TRIBENZOR [Concomitant]
  3. LEVOTHYROXIN [Concomitant]
  4. LASIX [Concomitant]
  5. ANASTROZOLE [Concomitant]
  6. JUDROXYCHLOR [Concomitant]
  7. TRA,A=DP; [Concomitant]
  8. HYDROCOLACE [Concomitant]
  9. CALCIUM [Concomitant]
  10. VIT D [Concomitant]
  11. VITAMIN B12 [Concomitant]
  12. ASPIRIN [Concomitant]
  13. PRILOSEC [Concomitant]

REACTIONS (33)
  - Influenza like illness [None]
  - Asthenia [None]
  - Dizziness [None]
  - Nausea [None]
  - Dysstasia [None]
  - Blood pressure increased [None]
  - Arthralgia [None]
  - Myalgia [None]
  - Sleep disorder [None]
  - Asthenia [None]
  - Pain in extremity [None]
  - Back pain [None]
  - Decreased appetite [None]
  - Muscular weakness [None]
  - Activities of daily living impaired [None]
  - Fatigue [None]
  - Gait disturbance [None]
  - Toothache [None]
  - Dental caries [None]
  - Pain in jaw [None]
  - Mastication disorder [None]
  - Dry eye [None]
  - Eye pain [None]
  - Glaucoma [None]
  - Weight decreased [None]
  - Economic problem [None]
  - Feeling abnormal [None]
  - Bone pain [None]
  - Pain in extremity [None]
  - Feeling abnormal [None]
  - Jaw disorder [None]
  - Hypophagia [None]
  - Renal function test abnormal [None]
